FAERS Safety Report 8080658-9 (Version None)
Quarter: 2012Q1

REPORT INFORMATION
  Report Type: 
  Country: None (occurrence: None)
  Receive Date: 20120130
  Receipt Date: 20120120
  Transmission Date: 20120608
  Serious: Yes (Other)
  Sender: FDA-Public Use
  Company Number: PHHO2012US001604

PATIENT
  Age: 52 Year
  Sex: Female
  Weight: 65.2 kg

DRUGS (10)
  1. MEDROL [Concomitant]
     Dosage: UNK
     Dates: start: 20090101, end: 20090301
  2. CHOP [Concomitant]
     Dosage: UNK
     Dates: start: 19970601, end: 19971201
  3. RITUXAN [Concomitant]
     Dosage: UNK
     Dates: start: 20000301, end: 20000401
  4. BENDAMUSTINE [Concomitant]
     Dosage: UNK
     Dates: start: 20080801, end: 20081101
  5. COMPARATOR SORAFENIB [Suspect]
     Indication: NON-HODGKIN'S LYMPHOMA
     Dosage: 200 MG, BID
     Route: 048
     Dates: start: 20090723, end: 20110412
  6. CYTOXAN [Concomitant]
     Dosage: UNK
     Dates: start: 19980201, end: 19981001
  7. TIPIFARNIB [Concomitant]
     Dosage: UNK
     Dates: start: 20050401, end: 20051201
  8. AFINITOR [Suspect]
     Indication: NON-HODGKIN'S LYMPHOMA
     Dosage: 5 MG, QD
     Route: 048
     Dates: start: 20090723, end: 20100206
  9. RADIATION THERAPY [Concomitant]
     Dosage: UNK
     Dates: start: 20040101, end: 20040201
  10. ZEVALIN [Concomitant]
     Dosage: UNK
     Dates: start: 20031101, end: 20031101

REACTIONS (2)
  - MALIGNANT MELANOMA [None]
  - NEOPLASM MALIGNANT [None]
